FAERS Safety Report 11021420 (Version 1)
Quarter: 2015Q2

REPORT INFORMATION
  Report Type: Spontaneous
  Country: GB (occurrence: GB)
  Receive Date: 20150413
  Receipt Date: 20150413
  Transmission Date: 20150821
  Serious: Yes (Other)
  Sender: FDA-Public Use
  Company Number: GB-WATSON-2015-07579

PATIENT
  Age: 28 Year
  Sex: Female

DRUGS (1)
  1. HYDROXYCHLOROQUINE (UNKNOWN) [Suspect]
     Active Substance: HYDROXYCHLOROQUINE
     Indication: POLYARTHRITIS
     Dosage: UNK
     Route: 065

REACTIONS (2)
  - Stillbirth [Unknown]
  - Maternal exposure during pregnancy [Unknown]
